FAERS Safety Report 15781416 (Version 2)
Quarter: 2019Q2

REPORT INFORMATION
  Report Type: Spontaneous
  Country: US (occurrence: US)
  Receive Date: 20190102
  Receipt Date: 20190402
  Transmission Date: 20190711
  Serious: No
  Sender: FDA-Public Use
  Company Number: US-SA-2018SA397412

PATIENT

DRUGS (1)
  1. XYZAL ALLERGY 24HR [Suspect]
     Active Substance: LEVOCETIRIZINE DIHYDROCHLORIDE
     Indication: HYPERSENSITIVITY
     Dosage: UNK UNK, UNK
     Route: 065

REACTIONS (6)
  - Nasal pruritus [Unknown]
  - Lacrimation increased [Unknown]
  - Eye pruritus [Unknown]
  - Rhinorrhoea [Unknown]
  - Drug ineffective [Unknown]
  - Sneezing [Unknown]
